FAERS Safety Report 18187298 (Version 1)
Quarter: 2020Q3

REPORT INFORMATION
  Report Type: Spontaneous
  Country: US (occurrence: US)
  Receive Date: 20200824
  Receipt Date: 20200824
  Transmission Date: 20201103
  Serious: Yes (Hospitalization)
  Sender: FDA-Public Use
  Company Number: None

PATIENT
  Age: 71 Year
  Sex: Female

DRUGS (5)
  1. CAPECITABINE. [Suspect]
     Active Substance: CAPECITABINE
     Indication: BREAST CANCER
     Dosage: ?          OTHER FREQUENCY:Q12H FOR 14 DAYS;?
     Route: 048
     Dates: start: 20200504, end: 20200729
  2. XGEVA [Concomitant]
     Active Substance: DENOSUMAB
  3. LEVOCETRIZINE [Concomitant]
     Active Substance: LEVOCETIRIZINE
  4. FASLODEX [Concomitant]
     Active Substance: FULVESTRANT
  5. LABETALOL [Concomitant]
     Active Substance: LABETALOL\LABETALOL HYDROCHLORIDE

REACTIONS (2)
  - Hypotension [None]
  - COVID-19 [None]

NARRATIVE: CASE EVENT DATE: 20200824
